FAERS Safety Report 6360306-6 (Version None)
Quarter: 2009Q3

REPORT INFORMATION
  Report Type: 
  Country: None (occurrence: None)
  Receive Date: 20090917
  Receipt Date: 20090910
  Transmission Date: 20100115
  Serious: Yes (Other)
  Sender: FDA-Public Use
  Company Number: FR-TEVA-207052ISR

PATIENT
  Age: 6 Year
  Sex: Female

DRUGS (4)
  1. VINCRISTINE [Suspect]
     Dosage: UNIT: 1.5MG/M2 AT DAY 1
     Dates: start: 20040101, end: 20060901
  2. CARBOPLATIN [Suspect]
     Indication: GLIOMA
     Dosage: UNIT: 150MG/M2 AT DAY 1
     Dates: start: 20040101, end: 20060901
  3. TEMOZOLOMIDE [Suspect]
     Indication: GLIOMA
     Dosage: UNIT: 150MG FROM DAY 2 TO DAY 6
     Dates: start: 20040101, end: 20060901
  4. DEXAMETHASONE [Concomitant]
     Dates: end: 20070701

REACTIONS (2)
  - ARACHNOIDITIS [None]
  - NEUROCRYPTOCOCCOSIS [None]
